FAERS Safety Report 14372182 (Version 1)
Quarter: 2018Q1

REPORT INFORMATION
  Report Type: Report from Study
  Country: IT (occurrence: IT)
  Receive Date: 20180110
  Receipt Date: 20180110
  Transmission Date: 20180509
  Serious: Yes (Death, Other)
  Sender: FDA-Public Use
  Company Number: IT-MYLANLABS-2017M1083827

PATIENT

DRUGS (1)
  1. CARBIDOPA/LEVODOPA [Suspect]
     Active Substance: CARBIDOPA\LEVODOPA
     Indication: PARKINSON^S DISEASE
     Dosage: ADMINISTERED THROUGH A TEMPORARY NASOJEJUNAL TUBE, FOLLOWED BY ADMINISTRATION THROUGH A PEG-J TUBE.
     Route: 065

REACTIONS (2)
  - Peritonitis [Fatal]
  - Small intestinal perforation [Fatal]
